FAERS Safety Report 7262333-3 (Version None)
Quarter: 2011Q1

REPORT INFORMATION
  Report Type: 
  Country: None (occurrence: None)
  Receive Date: 20110130
  Receipt Date: 20101129
  Transmission Date: 20110831
  Serious: No
  Sender: FDA-Public Use
  Company Number: US-ABBOTT-10P-163-0688129-00

PATIENT
  Age: 36 Year
  Sex: Female

DRUGS (11)
  1. SEASONALE [Concomitant]
     Indication: MENSTRUAL DISORDER
     Dosage: 0.15/0.03 MG
  2. ZOCOR [Concomitant]
     Indication: BLOOD CHOLESTEROL INCREASED
  3. PAXIL [Concomitant]
     Indication: DEPRESSION
  4. METOPROLOL [Concomitant]
     Indication: HYPERTENSION
  5. PENTASA [Concomitant]
     Indication: CROHN'S DISEASE
  6. HUMIRA [Suspect]
     Indication: CROHN'S DISEASE
     Dates: start: 20101112
  7. AMARYL [Concomitant]
     Indication: DIABETES MELLITUS
  8. ENTOCORT EC [Concomitant]
     Indication: CROHN'S DISEASE
  9. ELEAVIL HCL [Concomitant]
     Indication: NEURALGIA
  10. METFORMIN HC [Concomitant]
     Indication: DIABETES MELLITUS
  11. ACIPHEX [Concomitant]
     Indication: GASTROOESOPHAGEAL REFLUX DISEASE

REACTIONS (3)
  - HEADACHE [None]
  - CHEST PAIN [None]
  - DYSPHAGIA [None]
